FAERS Safety Report 5645431-7 (Version None)
Quarter: 2008Q1

REPORT INFORMATION
  Report Type: 
  Country: None (occurrence: None)
  Receive Date: 20080229
  Receipt Date: 20070220
  Transmission Date: 20080703
  Serious: No
  Sender: FDA-Public Use
  Company Number: US-BRISTOL-MYERS SQUIBB COMPANY-13685250

PATIENT

DRUGS (1)
  1. TAXOL [Suspect]
     Indication: BREAST CANCER

REACTIONS (2)
  - ARTHRALGIA [None]
  - MYALGIA [None]
